FAERS Safety Report 9852897 (Version 3)
Quarter: 2014Q2

REPORT INFORMATION
  Report Type: Spontaneous
  Country: US (occurrence: US)
  Receive Date: 20140129
  Receipt Date: 20140630
  Transmission Date: 20141212
  Serious: Yes (Other)
  Sender: FDA-Public Use
  Company Number: US-PFIZER INC-2014024390

PATIENT
  Age: 61 Year
  Sex: Female
  Weight: 82.72 kg

DRUGS (4)
  1. LIPITOR [Suspect]
     Indication: LOW DENSITY LIPOPROTEIN INCREASED
     Dosage: 20 MG, DAILY
     Route: 048
     Dates: start: 200609
  2. LIPITOR [Suspect]
     Indication: CARDIOVASCULAR EVENT PROPHYLAXIS
     Dosage: 40 MG, DAILY
     Dates: start: 200704, end: 200908
  3. LIPITOR [Suspect]
     Dosage: 10 MG, DAILY
     Dates: start: 20100813, end: 20111018
  4. LIPITOR [Suspect]
     Dosage: 20 MG, DAILY
     Dates: start: 201110, end: 201201

REACTIONS (4)
  - Type 2 diabetes mellitus [Not Recovered/Not Resolved]
  - Visual impairment [Unknown]
  - Renal disorder [Unknown]
  - Neuropathy peripheral [Not Recovered/Not Resolved]
